FAERS Safety Report 4490084-7 (Version None)
Quarter: 2004Q4

REPORT INFORMATION
  Report Type: 
  Country: None (occurrence: None)
  Receive Date: 20041027
  Receipt Date: 20041012
  Transmission Date: 20050328
  Serious: Yes (Other)
  Sender: FDA-Public Use
  Company Number: 430011P04FRA

PATIENT
  Age: 35 Year
  Sex: Female

DRUGS (6)
  1. MITOXANTRONE [Suspect]
     Indication: MULTIPLE SCLEROSIS
     Dosage: 20.04 MG, 1 IN 1 CYCLE, INTRAVENOUS (NOT OTHERWISE SPECIFIED)
     Route: 042
     Dates: start: 20040906, end: 20040906
  2. SMECTA ^PFIZER^ [Concomitant]
  3. HEPARIN-FRACTION, SODIUM SALT [Concomitant]
  4. GABAPENTIN [Concomitant]
  5. AMITRIPTYLINE HYDROCHLORIDE [Concomitant]
  6. DIHYDROERGOTAMINE MESYLATE [Concomitant]

REACTIONS (4)
  - HERPES SIMPLEX [None]
  - LEUKOPENIA [None]
  - LYMPHADENOPATHY [None]
  - NEUTROPENIA [None]
